FAERS Safety Report 12254879 (Version 1)
Quarter: 2016Q2

REPORT INFORMATION
  Report Type: Spontaneous
  Country: GB (occurrence: GB)
  Receive Date: 20160411
  Receipt Date: 20160411
  Transmission Date: 20160815
  Serious: Yes (Disabling)
  Sender: FDA-Public Use
  Company Number: GB-BAUSCH-BL-2016-008368

PATIENT
  Age: 36 Year
  Sex: Male

DRUGS (3)
  1. NICOTINE. [Concomitant]
     Active Substance: NICOTINE
     Indication: PRODUCT USED FOR UNKNOWN INDICATION
     Dates: start: 20160211, end: 20160218
  2. NIQUITIN [Concomitant]
     Active Substance: NICOTINE
     Indication: PRODUCT USED FOR UNKNOWN INDICATION
     Dates: start: 20160115, end: 20160121
  3. METRONIDAZOLE. [Suspect]
     Active Substance: METRONIDAZOLE
     Indication: PRODUCT USED FOR UNKNOWN INDICATION
     Route: 065
     Dates: start: 20160323

REACTIONS (1)
  - Vomiting projectile [Not Recovered/Not Resolved]

NARRATIVE: CASE EVENT DATE: 20160323
